FAERS Safety Report 14322617 (Version 2)
Quarter: 2018Q1

REPORT INFORMATION
  Report Type: Spontaneous
  Country: CH (occurrence: CH)
  Receive Date: 20171225
  Receipt Date: 20180130
  Transmission Date: 20180509
  Serious: Yes (Death, Hospitalization, Disabling)
  Sender: FDA-Public Use
  Company Number: PHHY2017CH190736

PATIENT

DRUGS (5)
  1. TOREM [Concomitant]
     Active Substance: TORSEMIDE
     Indication: OEDEMA DUE TO CARDIAC DISEASE
     Dosage: 5 MG, QD
     Route: 048
  2. XARELTO [Concomitant]
     Active Substance: RIVAROXABAN
     Indication: TACHYCARDIA
  3. CIPRALEX [Concomitant]
     Active Substance: ESCITALOPRAM OXALATE
     Indication: PRODUCT USED FOR UNKNOWN INDICATION
     Dosage: 10 MG, QD
     Route: 048
  4. FEMARA [Suspect]
     Active Substance: LETROZOLE
     Indication: BREAST CANCER RECURRENT
     Dosage: 2.5 MG, QD
     Route: 048
     Dates: start: 20170621, end: 20170624
  5. XARELTO [Concomitant]
     Active Substance: RIVAROXABAN
     Indication: ATRIAL FIBRILLATION
     Dosage: 10 MG, QD
     Route: 048

REACTIONS (6)
  - Disease progression [Fatal]
  - Breast neoplasm [Fatal]
  - General physical health deterioration [Fatal]
  - Neoplasm recurrence [Fatal]
  - Spinal cord infarction [Fatal]
  - Paraplegia [Unknown]

NARRATIVE: CASE EVENT DATE: 20170626
